FAERS Safety Report 9494226 (Version 5)
Quarter: 2014Q3

REPORT INFORMATION
  Report Type: Spontaneous
  Country: US (occurrence: None)
  Receive Date: 20130828
  Receipt Date: 20140729
  Transmission Date: 20150326
  Serious: Yes (Hospitalization)
  Sender: FDA-Public Use
  Company Number: US-000763

PATIENT
  Sex: Female

DRUGS (20)
  1. MULTIVITAMINS (UNKNOWN) [Concomitant]
  2. TUMS / 07357001/ (UNKNOWN) [Concomitant]
  3. TRAMADOL [Concomitant]
     Active Substance: TRAMADOL
  4. ZINC [Concomitant]
     Active Substance: ZINC\ZINC CHLORIDE
  5. SODIUM BICARBONATE. [Concomitant]
     Active Substance: SODIUM BICARBONATE
  6. POTASSIUM CHLORIDE. [Concomitant]
     Active Substance: POTASSIUM CHLORIDE
  7. VITAMIN B12 [Concomitant]
     Active Substance: CYANOCOBALAMIN
  8. XARELTO [Concomitant]
     Active Substance: RIVAROXABAN
  9. ZOFRAN / 00955301/ (UNKNOWN) [Concomitant]
  10. VITAMIN B COMPLEX [Concomitant]
     Active Substance: CYANOCOBALAMIN\DEXPANTHENOL\NIACINAMIDE\PYRIDOXINE HYDROCHLORIDE\RIBOFLAVIN 5^-PHOSPHATE SODIUM\THIAMINE HYDROCHLORIDE\VITAMIN B COMPLEX
  11. COPPER [Concomitant]
     Active Substance: COPPER
  12. CALCIUM [Concomitant]
     Active Substance: CALCIUM
  13. VITAMIN D3 [Concomitant]
     Active Substance: CHOLECALCIFEROL
  14. MAGNESIUM [Concomitant]
     Active Substance: MAGNESIUM
  15. PANTOPRAZOLE [Concomitant]
     Active Substance: PANTOPRAZOLE SODIUM
  16. CALCIUM  +D3 [Concomitant]
     Active Substance: CALCIUM\CHOLECALCIFEROL
  17. RANITIDINE [Concomitant]
     Active Substance: RANITIDINE\RANITIDINE HYDROCHLORIDE
  18. GATTEX [Suspect]
     Active Substance: TEDUGLUTIDE\WATER
     Indication: SHORT-BOWEL SYNDROME
     Dosage: (0.51 ML QD, STREN/VOLUM: 0.5 ML\FREQU:  ONCE DILY SUBCUTANEOUS)?
     Route: 058
     Dates: start: 20130530, end: 201310
  19. STRESS B COMPLEX / 07499601 (UNKNOWN) [Concomitant]
  20. METOCLOPRAMIDE. [Concomitant]
     Active Substance: METOCLOPRAMIDE

REACTIONS (15)
  - Intentional product misuse [None]
  - Headache [None]
  - Pain in extremity [None]
  - Skin discolouration [None]
  - Electrolyte imbalance [None]
  - Vomiting [None]
  - Abdominal pain [None]
  - Nausea [None]
  - Dehydration [None]
  - Malaise [None]
  - Diarrhoea [None]
  - Dizziness [None]
  - Lactic acidosis [None]
  - Drug dose omission [None]
  - Fluid retention [None]

NARRATIVE: CASE EVENT DATE: 2013
